FAERS Safety Report 5450925-3 (Version None)
Quarter: 2007Q3

REPORT INFORMATION
  Report Type: 
  Country: None (occurrence: None)
  Receive Date: 20070911
  Receipt Date: 20070830
  Transmission Date: 20080115
  Serious: Yes (Hospitalization)
  Sender: FDA-Public Use
  Company Number: 236538K07USA

PATIENT
  Age: 42 Year
  Sex: Male
  Weight: 83.9154 kg

DRUGS (7)
  1. REBIF [Suspect]
     Indication: OFF LABEL USE
     Dosage: 44 MCG, 3 IN 1 WEEKS, SUBCUTANEOUS; 44 MCG, 3 IN 1 WEEKS, SUBCUTANEOUS
     Route: 058
     Dates: start: 20051228, end: 20070729
  2. REBIF [Suspect]
     Indication: OFF LABEL USE
     Dosage: 44 MCG, 3 IN 1 WEEKS, SUBCUTANEOUS; 44 MCG, 3 IN 1 WEEKS, SUBCUTANEOUS
     Route: 058
     Dates: start: 20070805
  3. NEURONTIN [Concomitant]
  4. WELLBUTRIN [Concomitant]
  5. KLONOPIN [Concomitant]
  6. UROXATRAL (ALFULZOSIN HYDROCHLORIDE) [Concomitant]
  7. BACLOFEN [Concomitant]

REACTIONS (6)
  - CONDITION AGGRAVATED [None]
  - CONSTIPATION [None]
  - GASTRIC DISORDER [None]
  - MULTIPLE SCLEROSIS [None]
  - MUSCLE SPASMS [None]
  - PNEUMONIA [None]
